FAERS Safety Report 13094072 (Version 1)
Quarter: 2017Q1

REPORT INFORMATION
  Report Type: Spontaneous
  Country: US (occurrence: US)
  Receive Date: 20170106
  Receipt Date: 20170106
  Transmission Date: 20170428
  Serious: No
  Sender: FDA-Public Use
  Company Number: US-PFIZER INC-2017001177

PATIENT
  Sex: Female

DRUGS (1)
  1. GABAPENTIN. [Suspect]
     Active Substance: GABAPENTIN
     Indication: VERTEBRAL OSTEOPHYTE
     Dosage: UNK

REACTIONS (3)
  - Fall [Unknown]
  - Product use issue [Unknown]
  - Hallucination [Unknown]
